FAERS Safety Report 23427078 (Version 3)
Quarter: 2024Q1

REPORT INFORMATION
  Report Type: Spontaneous
  Country: US (occurrence: US)
  Receive Date: 20240122
  Receipt Date: 20240221
  Transmission Date: 20240410
  Serious: No
  Sender: FDA-Public Use
  Company Number: US-PFIZER INC-PV202400000129

PATIENT
  Age: 12 Year
  Sex: Female
  Weight: 38.549 kg

DRUGS (2)
  1. GENOTROPIN [Suspect]
     Active Substance: SOMATROPIN
     Indication: Growth disorder
     Dosage: 3.0 MG
  2. GENOTROPIN [Suspect]
     Active Substance: SOMATROPIN
     Dosage: 3.4 MG, 1X/DAY

REACTIONS (5)
  - Poor quality device used [Unknown]
  - Device breakage [Unknown]
  - Device occlusion [Unknown]
  - Device use issue [Unknown]
  - Drug dose omission by device [Unknown]
